FAERS Safety Report 5413465-3 (Version None)
Quarter: 2007Q3

REPORT INFORMATION
  Report Type: 
  Country: None (occurrence: None)
  Receive Date: 20070809
  Receipt Date: 20070809
  Transmission Date: 20080115
  Serious: No
  Sender: FDA-Public Use
  Company Number: None

PATIENT
  Age: 67 Year
  Sex: Female
  Weight: 77.1115 kg

DRUGS (1)
  1. EUFLEXXA 20MG/2ML FERRING [Suspect]
     Indication: OSTEOARTHRITIS
     Dosage: 2ML WEEKLY X 3 INTRA-ARTIC
     Route: 014
     Dates: start: 20070726, end: 20070802

REACTIONS (1)
  - GOUT [None]
